FAERS Safety Report 6492894-3 (Version None)
Quarter: 2009Q4

REPORT INFORMATION
  Report Type: 
  Country: None (occurrence: None)
  Receive Date: 20091214
  Receipt Date: 20091202
  Transmission Date: 20100525
  Serious: Yes (Hospitalization)
  Sender: FDA-Public Use
  Company Number: PHHY2009ES52978

PATIENT
  Age: 26 Year
  Sex: Female

DRUGS (1)
  1. ELIDEL [Suspect]
     Indication: ECZEMA
     Dosage: UNK
     Route: 061
     Dates: start: 20090201, end: 20090801

REACTIONS (2)
  - HERPES ZOSTER INFECTION NEUROLOGICAL [None]
  - MENINGITIS HERPES [None]
